FAERS Safety Report 9469267 (Version 2)
Quarter: 2013Q3

REPORT INFORMATION
  Report Type: Spontaneous
  Country: GB (occurrence: GB)
  Receive Date: 20130821
  Receipt Date: 20130912
  Transmission Date: 20140515
  Serious: Yes (Hospitalization, Other)
  Sender: FDA-Public Use
  Company Number: GB-WATSON-2013-14895

PATIENT
  Age: 54 Year
  Sex: Female

DRUGS (4)
  1. MIRTAZAPINE (UNKNOWN) [Suspect]
     Indication: DEPRESSION
     Dosage: UNK
     Route: 048
     Dates: end: 2012
  2. DIAZEPAM [Concomitant]
     Indication: PRODUCT USED FOR UNKNOWN INDICATION
     Dosage: 4 MG, UNKNOWN
     Route: 065
  3. DIAZEPAM [Concomitant]
  4. PRIADEL                            /00033702/ [Concomitant]
     Indication: PRODUCT USED FOR UNKNOWN INDICATION
     Dosage: 500 MG, DAILY
     Route: 065

REACTIONS (4)
  - Pancreatitis [Recovered/Resolved]
  - Hepatic function abnormal [Recovered/Resolved]
  - Amylase abnormal [Recovered/Resolved]
  - Lipase abnormal [Recovered/Resolved]
